FAERS Safety Report 6523372-0 (Version None)
Quarter: 2009Q4

REPORT INFORMATION
  Report Type: 
  Country: None (occurrence: None)
  Receive Date: 20091231
  Receipt Date: 20091223
  Transmission Date: 20100525
  Serious: Yes (Hospitalization)
  Sender: FDA-Public Use
  Company Number: US-BRISTOL-MYERS SQUIBB COMPANY-14835599

PATIENT
  Age: 64 Year
  Sex: Male
  Weight: 89 kg

DRUGS (9)
  1. ERBITUX [Suspect]
     Indication: OESOPHAGEAL CARCINOMA
     Dosage: PUT ON C1:830 MG IV LOADING DOSE:20OCT09 C2D1:519MG IV ON 10NOV09 RESUMED ON 03NOV09
     Route: 042
     Dates: start: 20091020, end: 20091110
  2. ELOXATIN [Suspect]
     Indication: OESOPHAGEAL CARCINOMA
     Dosage: C1:270MG IV Q3W:20OCT09 C2D1:210MG IV ON 10NOV09
     Route: 042
     Dates: start: 20091020, end: 20091110
  3. TAXOTERE [Suspect]
     Indication: OESOPHAGEAL CARCINOMA
     Dosage: C1:125MG IV Q3W:20OCT09 C2D1:95MG IV ON 10NOV09
     Route: 042
     Dates: start: 20091020, end: 20091203
  4. ALOXI [Concomitant]
     Route: 042
     Dates: start: 20091110
  5. DEXAMETHASONE [Concomitant]
     Route: 042
     Dates: start: 20091110
  6. DIPHENHYDRAMINE HCL [Concomitant]
     Route: 042
     Dates: start: 20091020
  7. MAGNESIUM SULFATE [Concomitant]
     Route: 042
     Dates: start: 20091110
  8. CALCIUM GLUCONATE [Concomitant]
     Route: 042
     Dates: start: 20091110
  9. SANDOSTATIN LAR [Concomitant]
     Dosage: SANDOSTATIN LAR DEPOT
     Dates: start: 20091103

REACTIONS (5)
  - ACUTE MYOCARDIAL INFARCTION [None]
  - ATRIAL FIBRILLATION [None]
  - DEHYDRATION [None]
  - DIARRHOEA [None]
  - SYNCOPE [None]
